FAERS Safety Report 4575710-6 (Version None)
Quarter: 2005Q1

REPORT INFORMATION
  Report Type: 
  Country: None (occurrence: None)
  Receive Date: 20050209
  Receipt Date: 20050202
  Transmission Date: 20050727
  Serious: Yes (Hospitalization)
  Sender: FDA-Public Use
  Company Number: BR-JNJFOC-20050201630

PATIENT
  Age: 23 Month
  Sex: Female

DRUGS (12)
  1. TYLENOL [Suspect]
  2. TYLENOL [Suspect]
  3. SUSTAGEN [Concomitant]
  4. SUSTAGEN [Concomitant]
  5. SUSTAGEN [Concomitant]
  6. SUSTAGEN [Concomitant]
  7. SUSTAGEN [Concomitant]
  8. SUSTAGEN [Concomitant]
  9. SUSTAGEN [Concomitant]
  10. SUSTAGEN [Concomitant]
  11. SUSTAGEN [Concomitant]
  12. SUSTAGEN [Concomitant]

REACTIONS (3)
  - ERYTHEMA [None]
  - EYELID OEDEMA [None]
  - FACE OEDEMA [None]
